FAERS Safety Report 8905157 (Version 1)
Quarter: 2012Q4

REPORT INFORMATION
  Report Type: 
  Country: JP (occurrence: JP)
  Receive Date: 20121109
  Receipt Date: 20121109
  Transmission Date: 20130627
  Serious: Yes (Other)
  Sender: FDA-Public Use
  Company Number: JP-009507513-1210JPN012308

PATIENT
  Age: 53 Year
  Sex: Female

DRUGS (3)
  1. FOSAMAC TABLETS-5 [Suspect]
     Dosage: 5 mg, qd
     Route: 048
  2. ALFACALCIDOL [Concomitant]
     Dosage: 1 Microgram, qd Formulation: POR
     Route: 048
  3. PREDONINE [Concomitant]
     Dosage: 15 mg, qd
     Route: 048

REACTIONS (1)
  - Femur fracture [Recovered/Resolved]
